FAERS Safety Report 12090231 (Version 1)
Quarter: 2016Q1

REPORT INFORMATION
  Report Type: Spontaneous
  Country: US (occurrence: US)
  Receive Date: 20160218
  Receipt Date: 20160218
  Transmission Date: 20160526
  Serious: No
  Sender: FDA-Public Use
  Company Number: US-EMD SERONO-8067848

PATIENT
  Age: 60 Year
  Sex: Female

DRUGS (1)
  1. SEROSTIM [Suspect]
     Active Substance: SOMATROPIN
     Indication: HYPOTHALAMO-PITUITARY DISORDER
     Route: 058
     Dates: start: 20150106

REACTIONS (2)
  - Dry skin [Unknown]
  - Dry mouth [Unknown]

NARRATIVE: CASE EVENT DATE: 20160208
